FAERS Safety Report 6279676-2 (Version None)
Quarter: 2009Q3

REPORT INFORMATION
  Report Type: 
  Country: None (occurrence: None)
  Receive Date: 20090723
  Receipt Date: 20090715
  Transmission Date: 20100115
  Serious: Yes (Hospitalization, Other)
  Sender: FDA-Public Use
  Company Number: US-AVENTIS-200912124EU

PATIENT
  Age: 65 Year
  Sex: Male
  Weight: 63 kg

DRUGS (7)
  1. LASILIX                            /00032601/ [Suspect]
  2. ALDACTONE [Suspect]
  3. PROPRANOLOL HCL [Concomitant]
  4. NEXIUM [Concomitant]
  5. IMODIUM [Concomitant]
     Dosage: DOSE: 1 CAPSULE
  6. ZESTRIL [Concomitant]
  7. ANTINEOPLASTIC AGENTS [Concomitant]
     Route: 048
     Dates: start: 20090206

REACTIONS (2)
  - HYPONATRAEMIA [None]
  - RENAL FAILURE [None]
